FAERS Safety Report 11684794 (Version 3)
Quarter: 2019Q3

REPORT INFORMATION
  Report Type: Report from Study
  Country: CA (occurrence: CA)
  Receive Date: 20151029
  Receipt Date: 20190903
  Transmission Date: 20191004
  Serious: Yes (Hospitalization)
  Sender: FDA-Public Use
  Company Number: PHHY2015CA138225

PATIENT
  Sex: Male

DRUGS (2)
  1. ILARIS [Suspect]
     Active Substance: CANAKINUMAB
     Dosage: 300 MG, Q4W
     Route: 058
  2. ILARIS [Suspect]
     Active Substance: CANAKINUMAB
     Indication: JUVENILE IDIOPATHIC ARTHRITIS
     Dosage: 150 MG, Q4W
     Route: 058
     Dates: start: 20140408

REACTIONS (1)
  - Tumour necrosis factor receptor-associated periodic syndrome [Unknown]

NARRATIVE: CASE EVENT DATE: 2015
